FAERS Safety Report 9664508 (Version 2)
Quarter: 2014Q1

REPORT INFORMATION
  Report Type: Spontaneous
  Country: US (occurrence: US)
  Receive Date: 20131101
  Receipt Date: 20140313
  Transmission Date: 20141002
  Serious: Yes (Hospitalization, Other)
  Sender: FDA-Public Use
  Company Number: US-BAXTER-2013BAX042099

PATIENT
  Sex: Male

DRUGS (8)
  1. DIANEAL LOW CALCIUM [Suspect]
     Indication: PERITONEAL DIALYSIS
     Route: 033
     Dates: start: 20051227
  2. DIANEAL LOW CALCIUM [Suspect]
     Indication: PERITONEAL DIALYSIS
     Dosage: 2 BAGS
     Route: 033
     Dates: start: 20051227
  3. DIANEAL LOW CALCIUM [Suspect]
     Route: 033
     Dates: start: 20060123
  4. DIANEAL LOW CALCIUM [Suspect]
     Indication: PERITONEAL DIALYSIS
     Route: 033
     Dates: start: 20051227
  5. EXTRANEAL [Suspect]
     Indication: PERITONEAL DIALYSIS
     Dosage: 1 BAG
     Route: 033
     Dates: start: 2005
  6. EXTRANEAL [Suspect]
     Route: 033
     Dates: start: 20060123
  7. INSULIN [Concomitant]
     Indication: DIABETES MELLITUS
  8. HEPARIN [Concomitant]
     Indication: PERITONITIS
     Dosage: 5000 UNITS PER BAG
     Route: 033
     Dates: start: 20131220, end: 20131224

REACTIONS (7)
  - Ulcer haemorrhage [Recovering/Resolving]
  - Myocardial infarction [Recovered/Resolved]
  - Arrhythmia [Recovering/Resolving]
  - Haemoglobin decreased [Recovering/Resolving]
  - Haemorrhage [Unknown]
  - Coronary artery occlusion [Unknown]
  - Peritonitis bacterial [Recovering/Resolving]
